FAERS Safety Report 23924564 (Version 9)
Quarter: 2024Q3

REPORT INFORMATION
  Report Type: Spontaneous
  Country: US (occurrence: US)
  Receive Date: 20240531
  Receipt Date: 20240925
  Transmission Date: 20241017
  Serious: No
  Sender: PFIZER
  Company Number: US-PFIZER INC-202400180442

PATIENT
  Age: 52 Year
  Sex: Female
  Weight: 91.63 kg

DRUGS (2)
  1. GENOTROPIN [Suspect]
     Active Substance: SOMATROPIN
     Indication: Growth hormone deficiency
     Dosage: 1.1 MG, 1X/DAY
  2. GENOTROPIN [Suspect]
     Active Substance: SOMATROPIN
     Indication: Hypopituitarism

REACTIONS (9)
  - Device breakage [Unknown]
  - Device material issue [Unknown]
  - Device mechanical issue [Unknown]
  - Expired product administered [Unknown]
  - Device delivery system issue [Unknown]
  - Expired device used [Unknown]
  - Device use error [Unknown]
  - Drug dose omission by device [Not Recovered/Not Resolved]
  - Brain fog [Not Recovered/Not Resolved]

NARRATIVE: CASE EVENT DATE: 20240101
